FAERS Safety Report 5339088-2 (Version None)
Quarter: 2007Q2

REPORT INFORMATION
  Report Type: 
  Country: None (occurrence: None)
  Receive Date: 20070330
  Receipt Date: 20060227
  Transmission Date: 20071010
  Serious: Yes (Other)
  Sender: FDA-Public Use
  Company Number: PHEH2006US02333

PATIENT
  Age: 81 Year
  Sex: Male

DRUGS (6)
  1. VIVELLE-DOT [Suspect]
     Indication: PROSTATE CANCER
     Dosage: SEE IMAGE
     Route: 062
     Dates: start: 20050801, end: 20050901
  2. VIVELLE-DOT [Suspect]
     Indication: PROSTATE CANCER
     Dosage: SEE IMAGE
     Route: 062
     Dates: start: 20050901
  3. KETOCONAZOLE [Concomitant]
  4. ESTRADIOL [Concomitant]
  5. AVODART [Concomitant]
  6. LEUKINE [Concomitant]

REACTIONS (5)
  - BRAIN SCAN ABNORMAL [None]
  - CEREBROVASCULAR ACCIDENT [None]
  - PRESCRIBED OVERDOSE [None]
  - PROSTATIC SPECIFIC ANTIGEN INCREASED [None]
  - VISUAL DISTURBANCE [None]
